FAERS Safety Report 9432845 (Version 1)
Quarter: 2013Q3

REPORT INFORMATION
  Report Type: Spontaneous
  Country: CN (occurrence: None)
  Receive Date: 20130729
  Receipt Date: 20130729
  Transmission Date: 20140515
  Serious: Yes (Hospitalization)
  Sender: FDA-Public Use
  Company Number: JP-2011-10814

PATIENT
  Age: 54 Year
  Sex: Male

DRUGS (7)
  1. CILOSTAZOL [Suspect]
     Indication: DIABETIC NEPHROPATHY
     Route: 048
     Dates: start: 20100903
  2. PROBUCOL [Suspect]
     Indication: DIABETIC NEPHROPATHY
     Route: 048
     Dates: start: 20100903
  3. INSULIN GLARGINE [Concomitant]
  4. LOSARTAN POTASSIUM [Concomitant]
  5. ASPIRIN [Concomitant]
  6. NOVOLIN R [Concomitant]
  7. LANTUS [Concomitant]

REACTIONS (6)
  - Diabetic foot [None]
  - Renal failure chronic [None]
  - Paronychia [None]
  - Skin ulcer [None]
  - Peripheral arterial occlusive disease [None]
  - Dialysis [None]
